FAERS Safety Report 10377874 (Version 4)
Quarter: 2014Q4

REPORT INFORMATION
  Report Type: Spontaneous
  Country: BR (occurrence: BR)
  Receive Date: 20140812
  Receipt Date: 20141106
  Transmission Date: 20150528
  Serious: Yes (Other)
  Sender: FDA-Public Use
  Company Number: PHHY2014BR099100

PATIENT
  Sex: Female
  Weight: 49 kg

DRUGS (3)
  1. DIOVAN [Suspect]
     Active Substance: VALSARTAN
     Indication: HYPERTENSION
     Dosage: 160 MG, QD (MORNING)
     Route: 048
  2. GLIFAGE [Concomitant]
     Active Substance: METFORMIN HYDROCHLORIDE
     Indication: DIABETES MELLITUS
     Dosage: 1 DF, DAILY
     Route: 048
  3. SIMVASTATIN. [Concomitant]
     Active Substance: SIMVASTATIN
     Indication: VENOUS OCCLUSION
     Dosage: 1 DF, DAILY
     Route: 048

REACTIONS (5)
  - Total lung capacity decreased [Recovering/Resolving]
  - Chest discomfort [Recovered/Resolved]
  - Fatigue [Recovering/Resolving]
  - Blood pressure increased [Recovered/Resolved]
  - Dyspnoea [Recovering/Resolving]
